FAERS Safety Report 7023726-2 (Version None)
Quarter: 2010Q4

REPORT INFORMATION
  Report Type: 
  Country: None (occurrence: None)
  Receive Date: 20101001
  Receipt Date: 20100323
  Transmission Date: 20110411
  Serious: Yes (Hospitalization)
  Sender: FDA-Public Use
  Company Number: US-BAYER-201014012NA

PATIENT
  Age: 31 Year
  Sex: Female
  Weight: 104 kg

DRUGS (6)
  1. YASMIN [Suspect]
     Indication: PRODUCT USED FOR UNKNOWN INDICATION
     Route: 048
     Dates: start: 20060401
  2. ZITHROMAX [Concomitant]
     Dates: start: 20070101
  3. LEVOTHYROXINE SODIUM [Concomitant]
     Dates: start: 20070522
  4. PROMETRIUM [Concomitant]
     Route: 048
  5. FERROUS [Concomitant]
     Dosage: UNIT DOSE: 325 MG
  6. LEVOTHROID [Concomitant]

REACTIONS (6)
  - ABDOMINAL PAIN UPPER [None]
  - BACK PAIN [None]
  - BILIARY COLIC [None]
  - CHEST PAIN [None]
  - CHOLECYSTITIS CHRONIC [None]
  - CHOLELITHIASIS [None]
